FAERS Safety Report 6245769-9 (Version None)
Quarter: 2009Q2

REPORT INFORMATION
  Report Type: 
  Country: None (occurrence: None)
  Receive Date: 20090625
  Receipt Date: 20090616
  Transmission Date: 20091009
  Serious: Yes (Hospitalization)
  Sender: FDA-Public Use
  Company Number: US-GILEAD-2009-0022635

PATIENT
  Sex: Male
  Weight: 119.4 kg

DRUGS (2)
  1. AMBRISENTAN [Suspect]
     Indication: PULMONARY ARTERIAL HYPERTENSION
     Route: 048
     Dates: start: 20070927, end: 20080117
  2. SILDENAFIL CITRATE [Concomitant]
     Route: 048
     Dates: start: 20070401

REACTIONS (3)
  - BRONCHIECTASIS [None]
  - HYPOXIA [None]
  - KLEBSIELLA INFECTION [None]
